FAERS Safety Report 8990406 (Version 2)
Quarter: 2013Q1

REPORT INFORMATION
  Report Type: Spontaneous
  Country: US (occurrence: US)
  Receive Date: 20121228
  Receipt Date: 20130317
  Transmission Date: 20140127
  Serious: Yes (Hospitalization, Other)
  Sender: FDA-Public Use
  Company Number: US-B.I. PHARMACEUTICALS,INC./RIDGEFIELD-2012-BI-03844BP

PATIENT
  Age: 63 None
  Sex: Female
  Weight: 58 kg

DRUGS (2)
  1. SPIRIVA [Suspect]
     Indication: BRONCHITIS CHRONIC
     Dosage: 18 MCG
     Route: 055
     Dates: start: 201206
  2. SPIRIVA [Suspect]
     Indication: LUNG DISORDER
     Route: 048
     Dates: start: 20121218, end: 20121218

REACTIONS (3)
  - Pneumothorax [Recovered/Resolved]
  - Lung neoplasm malignant [Not Recovered/Not Resolved]
  - Incorrect route of drug administration [Recovered/Resolved]
